FAERS Safety Report 5696512-3 (Version None)
Quarter: 2008Q2

REPORT INFORMATION
  Report Type: 
  Country: None (occurrence: None)
  Receive Date: 20080408
  Receipt Date: 20080331
  Transmission Date: 20081010
  Serious: Yes (Death, Hospitalization, Other)
  Sender: FDA-Public Use
  Company Number: US-BRISTOL-MYERS SQUIBB COMPANY-14131981

PATIENT
  Age: 69 Year
  Sex: Male
  Weight: 82 kg

DRUGS (14)
  1. WARFARIN SODIUM [Suspect]
  2. METFORMIN HCL [Suspect]
  3. OXYCODONE HCL [Suspect]
  4. FLUDROCORTISONE ACETATE [Suspect]
  5. ENOXAPARIN SODIUM [Suspect]
  6. OXYCONTIN [Suspect]
  7. PAXIL [Suspect]
  8. PREDNISONE TAB [Suspect]
  9. PREVACID [Suspect]
  10. SYNTHROID [Suspect]
  11. TOPAMAX [Suspect]
  12. BEVACIZUMAB [Concomitant]
     Indication: GLIOBLASTOMA MULTIFORME
     Dosage: FIRST DOSE:17-AUG-07
     Route: 042
     Dates: start: 20080108, end: 20080108
  13. IRINOTECAN HCL [Concomitant]
     Indication: GLIOBLASTOMA MULTIFORME
     Dosage: FIRST DOSE:17-AUG-07
     Route: 042
     Dates: start: 20080108, end: 20080108
  14. DECADRON [Concomitant]

REACTIONS (13)
  - BACK PAIN [None]
  - CEREBRAL HAEMORRHAGE [None]
  - CEREBRAL ISCHAEMIA [None]
  - CONFUSIONAL STATE [None]
  - DYSARTHRIA [None]
  - ENCEPHALOPATHY [None]
  - HEADACHE [None]
  - MENTAL STATUS CHANGES [None]
  - NEUROPATHY PERIPHERAL [None]
  - SOMNOLENCE [None]
  - SPEECH DISORDER [None]
  - THROMBOSIS [None]
  - WEIGHT DECREASED [None]
